FAERS Safety Report 6254928-0 (Version None)
Quarter: 2009Q3

REPORT INFORMATION
  Report Type: 
  Country: None (occurrence: None)
  Receive Date: 20090702
  Receipt Date: 20090701
  Transmission Date: 20100115
  Serious: Yes (Death, Hospitalization)
  Sender: FDA-Public Use
  Company Number: IT-BRISTOL-MYERS SQUIBB COMPANY-14686927

PATIENT
  Age: 62 Year
  Sex: Male
  Weight: 62 kg

DRUGS (8)
  1. PACLITAXEL [Suspect]
     Indication: NON-SMALL CELL LUNG CANCER
     Dosage: INITIALLY TAKEN ON 18MAY09.
     Route: 042
     Dates: start: 20090608, end: 20090608
  2. CARBOPLATIN [Suspect]
     Indication: NON-SMALL CELL LUNG CANCER
     Dosage: INITIALLY TAKEN ON 18MAY09.
     Route: 042
     Dates: start: 20090608, end: 20090608
  3. CP-751,871 [Suspect]
     Indication: NON-SMALL CELL LUNG CANCER
     Dosage: INITIALLY TAKEN ON 18MAY09.
     Route: 042
     Dates: start: 20090608, end: 20090608
  4. LOBIVON [Concomitant]
  5. OMNIC [Concomitant]
  6. OMEPRAZOLE [Concomitant]
  7. TAVANIC [Concomitant]
     Dates: start: 20090608
  8. DELTACORTENE [Concomitant]
     Dates: start: 20090608

REACTIONS (3)
  - CONDITION AGGRAVATED [None]
  - HAEMORRHOIDS [None]
  - SEPSIS [None]
